FAERS Safety Report 16891469 (Version 2)
Quarter: 2019Q4

REPORT INFORMATION
  Report Type: Spontaneous
  Country: DE (occurrence: DE)
  Receive Date: 20191007
  Receipt Date: 20191010
  Transmission Date: 20200122
  Serious: Yes (Other)
  Sender: FDA-Public Use
  Company Number: DE-MYLANLABS-2019M1092157

PATIENT
  Sex: Male

DRUGS (6)
  1. PRAVASTATIN. [Concomitant]
     Active Substance: PRAVASTATIN
     Dosage: 0-0-1 TBL.
  2. MARCUMAR [Concomitant]
     Active Substance: PHENPROCOUMON
     Dosage: NACH PLAN
  3. NITRENDIPIN [Concomitant]
     Active Substance: NITRENDIPINE
     Dosage: 0-1/2-1/2 TBL.
  4. AMIODARONE [Suspect]
     Active Substance: AMIODARONE
     Indication: ARRHYTHMIA
     Dosage: 1-0-0
  5. ENALAPRIL [Concomitant]
     Active Substance: ENALAPRIL
     Dosage: 1-0-0
  6. BISOPROLOL [Concomitant]
     Active Substance: BISOPROLOL
     Dosage: 0-0-1/2 TBL.

REACTIONS (14)
  - Hyporeflexia [Unknown]
  - Condition aggravated [Unknown]
  - Tremor [Unknown]
  - Peripheral sensory neuropathy [Unknown]
  - Peripheral nerve lesion [Unknown]
  - Dizziness [Unknown]
  - Ataxia [Unknown]
  - Nerve injury [Unknown]
  - Balance disorder [Unknown]
  - Demyelinating polyneuropathy [Unknown]
  - Parkinsonian gait [Unknown]
  - Gait disturbance [Unknown]
  - Hypoaesthesia [Unknown]
  - Areflexia [Unknown]

NARRATIVE: CASE EVENT DATE: 2018
